FAERS Safety Report 4953536-9 (Version None)
Quarter: 2006Q1

REPORT INFORMATION
  Report Type: 
  Country: None (occurrence: None)
  Receive Date: 20060324
  Receipt Date: 20060321
  Transmission Date: 20060701
  Serious: Yes (Other)
  Sender: FDA-Public Use
  Company Number: US-JNJFOC-20060305396

PATIENT
  Sex: Female
  Weight: 54.43 kg

DRUGS (15)
  1. LEVAQUIN [Suspect]
     Route: 048
  2. LEVAQUIN [Suspect]
     Route: 048
  3. LEVOXYL [Concomitant]
     Indication: HYPOTHYROIDISM
  4. ASPIRIN [Concomitant]
  5. MULTIVITAMIN [Concomitant]
  6. MULTIVITAMIN [Concomitant]
  7. MULTIVITAMIN [Concomitant]
  8. MULTIVITAMIN [Concomitant]
  9. MULTIVITAMIN [Concomitant]
  10. MULTIVITAMIN [Concomitant]
  11. MULTIVITAMIN [Concomitant]
  12. MULTIVITAMIN [Concomitant]
  13. FLAX SEED OIL [Concomitant]
  14. PRIMROSE OIL [Concomitant]
  15. OMEGA 3 [Concomitant]

REACTIONS (2)
  - ERYTHEMA NODOSUM [None]
  - PANNICULITIS [None]
